FAERS Safety Report 11681504 (Version 2)
Quarter: 2015Q4

REPORT INFORMATION
  Report Type: Report from Study
  Country: US (occurrence: US)
  Receive Date: 20151029
  Receipt Date: 20151106
  Transmission Date: 20160304
  Serious: No
  Sender: FDA-Public Use
  Company Number: US-AMGEN-USASL2015112655

PATIENT
  Age: 13 Year
  Sex: Female

DRUGS (3)
  1. ENBREL [Suspect]
     Active Substance: ETANERCEPT
     Indication: BEHCET^S SYNDROME
     Dosage: 25 MG, 2 TIMES/WK
     Route: 065
     Dates: start: 2015, end: 20151018
  2. ENBREL [Suspect]
     Active Substance: ETANERCEPT
     Indication: STOMATITIS
  3. ENBREL [Suspect]
     Active Substance: ETANERCEPT
     Indication: APHTHOUS ULCER

REACTIONS (4)
  - Malaise [Unknown]
  - Off label use [Unknown]
  - Bronchitis [Unknown]
  - Candida infection [Unknown]

NARRATIVE: CASE EVENT DATE: 2015
